FAERS Safety Report 26141333 (Version 1)
Quarter: 2025Q4

REPORT INFORMATION
  Report Type: Spontaneous
  Country: US (occurrence: US)
  Receive Date: 20251210
  Receipt Date: 20251210
  Transmission Date: 20260117
  Serious: Yes (Death, Life-Threatening)
  Sender: AMGEN
  Company Number: US-AMGEN-USASP2025239814

PATIENT
  Age: 16 Month
  Sex: Female

DRUGS (12)
  1. RITUXIMAB [Suspect]
     Active Substance: RITUXIMAB
     Indication: Mucous membrane pemphigoid
     Dosage: 375 MILLIGRAM/SQ. METER
     Route: 040
  2. AMOXICILLIN\CLAVULANIC ACID [Concomitant]
     Active Substance: AMOXICILLIN\CLAVULANIC ACID
  3. CEFTRIAXONE [Concomitant]
     Active Substance: CEFTRIAXONE
     Route: 040
  4. METHYLPREDNISOLONE [Concomitant]
     Active Substance: METHYLPREDNISOLONE
     Indication: Mucous membrane pemphigoid
  5. METHYLPREDNISOLONE [Concomitant]
     Active Substance: METHYLPREDNISOLONE
     Dosage: 30 MILLIGRAM/KILOGRAM
     Route: 040
  6. CLINDAMYCIN [Concomitant]
     Active Substance: CLINDAMYCIN
  7. MUPIROCIN [Concomitant]
     Active Substance: MUPIROCIN
  8. GENTAMICIN [Concomitant]
     Active Substance: GENTAMICIN
  9. ZINC [Concomitant]
     Active Substance: ZINC
  10. CYCLOPHOSPHAMIDE [Concomitant]
     Active Substance: CYCLOPHOSPHAMIDE
     Indication: Mucous membrane pemphigoid
     Dosage: 175 MILLIGRAM, QMO
  11. Immunoglobulin [Concomitant]
     Indication: Mucous membrane pemphigoid
     Dosage: 1 GRAM PER KILOGRAM, QMO
  12. MYCOPHENOLATE MOFETIL [Concomitant]
     Active Substance: MYCOPHENOLATE MOFETIL
     Indication: Mucous membrane pemphigoid

REACTIONS (4)
  - Respiratory failure [Fatal]
  - Mucous membrane pemphigoid [Unknown]
  - Drug ineffective for unapproved indication [Unknown]
  - Off label use [Unknown]
